FAERS Safety Report 20240417 (Version 1)
Quarter: 2021Q4

REPORT INFORMATION
  Report Type: Spontaneous
  Country: US (occurrence: None)
  Receive Date: 20211228
  Receipt Date: 20211228
  Transmission Date: 20220304
  Serious: Yes (Other)
  Sender: FDA-Public Use
  Company Number: None

PATIENT
  Age: 39 Year
  Sex: Female
  Weight: 67.1 kg

DRUGS (1)
  1. BAMLANIVIMAB\ETESEVIMAB [Suspect]
     Active Substance: BAMLANIVIMAB\ETESEVIMAB
     Indication: COVID-19
     Dosage: OTHER FREQUENCY : ONCE;?
     Route: 041
     Dates: start: 20211215, end: 20211215

REACTIONS (7)
  - Nausea [None]
  - Anxiety [None]
  - Back pain [None]
  - Feeling abnormal [None]
  - Urticaria [None]
  - Pruritus [None]
  - Discomfort [None]

NARRATIVE: CASE EVENT DATE: 20211215
